FAERS Safety Report 10021252 (Version 1)
Quarter: 2014Q1

REPORT INFORMATION
  Report Type: Spontaneous
  Country: US (occurrence: None)
  Receive Date: 20140318
  Receipt Date: 20140318
  Transmission Date: 20141002
  Serious: No
  Sender: FDA-Public Use
  Company Number: None

PATIENT
  Age: 24 Year
  Sex: Female
  Weight: 56.7 kg

DRUGS (2)
  1. ALLER EASE [Suspect]
     Indication: MULTIPLE ALLERGIES
     Dosage: 1 PILL
     Route: 048
     Dates: start: 20130228, end: 20140316
  2. TYLENOL [Concomitant]

REACTIONS (3)
  - Withdrawal syndrome [None]
  - Asthma [None]
  - Pruritus [None]
